FAERS Safety Report 14919925 (Version 1)
Quarter: 2018Q2

REPORT INFORMATION
  Report Type: Report from Study
  Country: GB (occurrence: GB)
  Receive Date: 20180521
  Receipt Date: 20180521
  Transmission Date: 20180711
  Serious: Yes (Other)
  Sender: FDA-Public Use
  Company Number: GB-JNJFOC-20180515160

PATIENT
  Age: 59 Year
  Sex: Female

DRUGS (1)
  1. DARZALEX [Suspect]
     Active Substance: DARATUMUMAB
     Indication: PLASMA CELL MYELOMA
     Route: 042
     Dates: start: 2016

REACTIONS (9)
  - Gastrointestinal disorder [Unknown]
  - Infusion related reaction [Unknown]
  - Urinary tract infection [Unknown]
  - Respiratory disorder [Unknown]
  - Infection [Unknown]
  - Cough [Unknown]
  - Chest discomfort [Unknown]
  - Nausea [Unknown]
  - Migraine [Unknown]

NARRATIVE: CASE EVENT DATE: 20160922
